FAERS Safety Report 9096580 (Version 1)
Quarter: 2013Q1

REPORT INFORMATION
  Report Type: Spontaneous
  Country: GB (occurrence: None)
  Receive Date: 20130125
  Receipt Date: 20130125
  Transmission Date: 20140127
  Serious: Yes (Life-Threatening, Disabling)
  Sender: FDA-Public Use
  Company Number: 2013-00882

PATIENT
  Age: 43 Year
  Sex: Female
  Weight: 89 kg

DRUGS (5)
  1. GABAPENTIN (GABAPENTIN) [Suspect]
     Indication: NERVE BLOCK
     Route: 048
     Dates: start: 20091101
  2. LEVOTHYROXINE (LEVOTHYROXINE) [Concomitant]
  3. PARACETAMMOL (PARACETAMOL) [Concomitant]
  4. CODEINE PHOSPHATE (CODEINE PHOSPHATE) [Concomitant]
  5. RHUMALGAN (DICLOFENAC SODIUM) [Concomitant]

REACTIONS (5)
  - Suicidal ideation [None]
  - Aggression [None]
  - Depression [None]
  - Mental disorder [None]
  - Withdrawal syndrome [None]
